FAERS Safety Report 10203350 (Version 9)
Quarter: 2015Q1

REPORT INFORMATION
  Report Type: Report from Study
  Country: CA (occurrence: CA)
  Receive Date: 20140529
  Receipt Date: 20150320
  Transmission Date: 20150720
  Serious: Yes (Death, Hospitalization, Other)
  Sender: FDA-Public Use
  Company Number: PHHY2014CA055966

PATIENT
  Age: 73 Year
  Sex: Male

DRUGS (1)
  1. SANDOSTATIN LAR DEPOT [Suspect]
     Active Substance: OCTREOTIDE ACETATE
     Indication: NEUROENDOCRINE TUMOUR
     Dosage: 60 MG, EVERY 4 WEEKS
     Route: 030
     Dates: start: 20100529, end: 20150112

REACTIONS (12)
  - Dysarthria [Unknown]
  - Hepatic lesion [Unknown]
  - Renal impairment [Recovering/Resolving]
  - Malaise [Unknown]
  - Back pain [Unknown]
  - Malignant melanoma [Unknown]
  - Second primary malignancy [Unknown]
  - Intestinal obstruction [Unknown]
  - Death [Fatal]
  - Pneumonia [Unknown]
  - Cough [Unknown]
  - Blood pressure systolic increased [Unknown]

NARRATIVE: CASE EVENT DATE: 2014
